FAERS Safety Report 10578640 (Version 1)
Quarter: 2014Q4

REPORT INFORMATION
  Report Type: Spontaneous
  Country: NL (occurrence: NL)
  Receive Date: 20141112
  Receipt Date: 20141112
  Transmission Date: 20150529
  Serious: Yes (Disabling)
  Sender: FDA-Public Use
  Company Number: NL-009507513-1411NLD003615

PATIENT
  Age: 34 Year
  Sex: Female
  Weight: 65 kg

DRUGS (2)
  1. MIRTAZAPINE. [Suspect]
     Active Substance: MIRTAZAPINE
     Indication: INSOMNIA
     Dosage: ONCE A DAY 1 PIECE, EXTRA INFO: 15 MG
     Route: 048
     Dates: start: 2010
  2. PAROXETINE HYDROCHLORIDE. [Interacting]
     Active Substance: PAROXETINE HYDROCHLORIDE
     Indication: EATING DISORDER
     Dosage: ONCE A DAY 1 PIECE, EXTRA INFO: 20/30 MG
     Route: 048
     Dates: start: 2000

REACTIONS (6)
  - Influenza like illness [Recovering/Resolving]
  - Insomnia [Recovering/Resolving]
  - Diarrhoea [Recovering/Resolving]
  - Dizziness [Recovering/Resolving]
  - Fatigue [Recovering/Resolving]
  - Emotional disorder [Recovering/Resolving]

NARRATIVE: CASE EVENT DATE: 20100101
